FAERS Safety Report 19722852 (Version 3)
Quarter: 2021Q3

REPORT INFORMATION
  Report Type: Report from Study
  Country: US (occurrence: US)
  Receive Date: 20210819
  Receipt Date: 20210913
  Transmission Date: 20211014
  Serious: Yes (Hospitalization)
  Sender: FDA-Public Use
  Company Number: US-BIOVITRUM-2021US7156

PATIENT
  Age: 32 Year
  Sex: Male

DRUGS (2)
  1. KINERET [Suspect]
     Active Substance: ANAKINRA
     Indication: STILL^S DISEASE
  2. KINERET [Suspect]
     Active Substance: ANAKINRA
     Indication: THERAPEUTIC DRUG MONITORING ANALYSIS INCORRECTLY PERFORMED
     Route: 058
     Dates: start: 20190905

REACTIONS (5)
  - Oxygen saturation decreased [Unknown]
  - Off label use [Unknown]
  - Bronchitis [Unknown]
  - Pyrexia [Unknown]
  - Product dose omission issue [Unknown]

NARRATIVE: CASE EVENT DATE: 201909
